FAERS Safety Report 6200475-1 (Version None)
Quarter: 2009Q2

REPORT INFORMATION
  Report Type: 
  Country: None (occurrence: None)
  Receive Date: 20090522
  Receipt Date: 20090429
  Transmission Date: 20091009
  Serious: Yes (Other)
  Sender: FDA-Public Use
  Company Number: GR-PFIZER INC-2009174241

PATIENT
  Age: 71 Year

DRUGS (6)
  1. AROMASIN [Suspect]
     Indication: BREAST CANCER
     Dosage: 25 MG, 1X/DAY
     Route: 048
  2. AROMASIN [Suspect]
     Dosage: 25 MG ONCE DAILY
     Route: 048
  3. FUROSEMIDE [Concomitant]
     Dosage: 40 MG, 1X/DAY
  4. FUROSEMIDE [Concomitant]
     Dosage: 40 MG ONCE DAILY
  5. PLAVIX [Concomitant]
     Dosage: 32 MG, 1X/DAY
  6. PLAVIX [Concomitant]
     Dosage: 1X1, 1 DF ONCE DAILY

REACTIONS (1)
  - VASCULITIC RASH [None]
